FAERS Safety Report 9097468 (Version 1)
Quarter: 2013Q1

REPORT INFORMATION
  Report Type: Spontaneous
  Country: US (occurrence: US)
  Receive Date: 20130212
  Receipt Date: 20130212
  Transmission Date: 20140127
  Serious: Yes (Death, Other)
  Sender: FDA-Public Use
  Company Number: US-ELI_LILLY_AND_COMPANY-US201302001669

PATIENT
  Age: 30 Year
  Sex: Male

DRUGS (6)
  1. FLUOXETINE HYDROCHLORIDE [Suspect]
  2. METHADONE [Concomitant]
  3. CYCLOBENZAPRINE [Concomitant]
  4. CLONAZEPAM [Concomitant]
  5. ETHANOL [Concomitant]
  6. HYDROCODONE [Concomitant]

REACTIONS (2)
  - Cardio-respiratory arrest [Fatal]
  - Drug abuse [Fatal]
